FAERS Safety Report 7325484-0 (Version None)
Quarter: 2011Q1

REPORT INFORMATION
  Report Type: 
  Country: None (occurrence: None)
  Receive Date: 20110302
  Receipt Date: 20110221
  Transmission Date: 20110831
  Serious: Yes (Other)
  Sender: FDA-Public Use
  Company Number: TR-SANOFI-AVENTIS-2011SA011391

PATIENT
  Age: 66 Year
  Sex: Female
  Weight: 69 kg

DRUGS (12)
  1. ALL OTHER THERAPEUTIC PRODUCTS [Concomitant]
     Dates: start: 20100101
  2. CLEXANE [Suspect]
     Route: 058
     Dates: start: 20110105
  3. CLEXANE [Suspect]
     Route: 058
     Dates: start: 20100801, end: 20110115
  4. SINGULAIR [Concomitant]
     Indication: ASTHMA
     Route: 048
  5. ISOPTIN [Concomitant]
     Route: 065
  6. SERETIDE DISKUS [Concomitant]
     Indication: ASTHMA
     Route: 055
  7. IPRATROPIUM BROMIDE/SALBUTAMOL SULFATE [Concomitant]
     Indication: ASTHMA
     Route: 055
  8. ALL OTHER THERAPEUTIC PRODUCTS [Concomitant]
     Indication: IMMUNE ENHANCEMENT THERAPY
     Dates: start: 20100101
  9. HYZAAR [Concomitant]
     Indication: HYPERTENSION
  10. FAMODIN [Concomitant]
  11. CLEXANE [Suspect]
     Indication: PULMONARY EMBOLISM
     Route: 058
     Dates: start: 20100801, end: 20110115
  12. CLEXANE [Suspect]
     Route: 058
     Dates: start: 20110105

REACTIONS (1)
  - BURNING SENSATION [None]
